FAERS Safety Report 5826145-7 (Version None)
Quarter: 2008Q3

REPORT INFORMATION
  Report Type: 
  Country: None (occurrence: None)
  Receive Date: 20080729
  Receipt Date: 20080717
  Transmission Date: 20090109
  Serious: Yes (Other)
  Sender: FDA-Public Use
  Company Number: GB-ELI_LILLY_AND_COMPANY-GB200807003808

PATIENT
  Age: 56 Year
  Sex: Female
  Weight: 76 kg

DRUGS (3)
  1. YENTREVE [Suspect]
     Indication: STRESS URINARY INCONTINENCE
     Dosage: 20 MG, UNKNOWN
     Route: 048
     Dates: start: 20080613, end: 20080626
  2. FEMOSTON [Concomitant]
     Indication: MENOPAUSE
     Dosage: UNK, UNKNOWN
     Route: 048
     Dates: start: 20080228
  3. LANSOPRAZOLE [Concomitant]
     Indication: GASTROOESOPHAGEAL REFLUX DISEASE
     Dosage: 15 MG, UNKNOWN
     Route: 048
     Dates: start: 20070423

REACTIONS (6)
  - COLD SWEAT [None]
  - DRY MOUTH [None]
  - HEADACHE [None]
  - OROPHARYNGEAL PAIN [None]
  - SOCIAL AVOIDANT BEHAVIOUR [None]
  - WEIGHT DECREASED [None]
